FAERS Safety Report 9051392 (Version 1)
Quarter: 2013Q1

REPORT INFORMATION
  Report Type: Spontaneous
  Country: None (occurrence: US)
  Receive Date: 20130206
  Receipt Date: 20130206
  Transmission Date: 20140127
  Serious: No
  Sender: FDA-Public Use
  Company Number: US-ALLERGAN-1204012US

PATIENT
  Age: 82 Year
  Sex: Female

DRUGS (2)
  1. RESTASIS? [Suspect]
     Indication: DRY EYE
     Dosage: 2 GTT, QD
     Route: 047
     Dates: start: 20120112, end: 201202
  2. SYSTANE [Concomitant]
     Indication: DRY EYE
     Dosage: 2 GTT, UNK
     Route: 047

REACTIONS (6)
  - Inappropriate schedule of drug administration [Unknown]
  - Pruritus [Recovering/Resolving]
  - Rash [Recovered/Resolved]
  - Rash [Recovered/Resolved]
  - Rash [Recovered/Resolved]
  - Rash [Recovered/Resolved]
